FAERS Safety Report 6841554-5 (Version None)
Quarter: 2010Q3

REPORT INFORMATION
  Report Type: 
  Country: None (occurrence: None)
  Receive Date: 20100714
  Receipt Date: 20100701
  Transmission Date: 20110219
  Serious: Yes (Other)
  Sender: FDA-Public Use
  Company Number: AT-PFIZER INC-2010082324

PATIENT
  Age: 47 Year
  Sex: Male

DRUGS (5)
  1. DOXORUBICIN HCL [Suspect]
     Indication: LYMPHOMA
     Dosage: 50 MG/M2, UNK
     Dates: start: 20010401
  2. VINCRISTINE SULFATE [Suspect]
     Indication: LYMPHOMA
     Dosage: 2 MG, DAYS 1-5
     Dates: start: 20010401
  3. CYCLOPHOSPHAMIDE [Suspect]
     Indication: LYMPHOMA
     Dosage: 750 MG/M2, UNK
     Dates: start: 20010401
  4. PREDNISOLONE [Suspect]
     Indication: LYMPHOMA
     Dosage: 100 MG/DAY
     Dates: start: 20010401
  5. RITUXIMAB [Suspect]
     Indication: LYMPHOMA
     Dosage: 375 MG/M2, UNK
     Dates: start: 20010401

REACTIONS (1)
  - HEPATITIS B [None]
